FAERS Safety Report 23311637 (Version 2)
Quarter: 2024Q2

REPORT INFORMATION
  Report Type: Report from Study
  Country: US (occurrence: US)
  Receive Date: 20231219
  Receipt Date: 20240506
  Transmission Date: 20240716
  Serious: Yes (Other)
  Sender: FDA-Public Use
  Company Number: US-ABBVIE-5448108

PATIENT
  Age: 36 Year
  Sex: Male
  Weight: 74.8 kg

DRUGS (1)
  1. SKYRIZI [Suspect]
     Active Substance: RISANKIZUMAB-RZAA
     Indication: Crohn^s disease
     Dosage: FORM STRENGTH: 360 MILLIGRAM
     Route: 058
     Dates: start: 20220909

REACTIONS (3)
  - Surgery [Unknown]
  - Post procedural complication [Recovering/Resolving]
  - Small intestinal stenosis [Recovering/Resolving]

NARRATIVE: CASE EVENT DATE: 20231001
